FAERS Safety Report 17575275 (Version 1)
Quarter: 2020Q1

REPORT INFORMATION
  Report Type: Report from Study
  Country: GB (occurrence: GB)
  Receive Date: 20200324
  Receipt Date: 20200324
  Transmission Date: 20200409
  Serious: Yes (Hospitalization)
  Sender: FDA-Public Use
  Company Number: GB-UCBSA-2020012046

PATIENT
  Age: 39 Year
  Sex: Female

DRUGS (2)
  1. CARBAMAZEPINE. [Concomitant]
     Active Substance: CARBAMAZEPINE
     Indication: EPILEPSY
     Dosage: UNK MILLIGRAM, UNK
     Route: 048
  2. BRIVARACETAM [Suspect]
     Active Substance: BRIVARACETAM
     Indication: EPILEPSY
     Dosage: 75 MILLIGRAM, 2X/DAY (BID)
     Route: 048
     Dates: start: 20191129

REACTIONS (4)
  - Speech disorder [Recovering/Resolving]
  - Hallucination [Recovering/Resolving]
  - Feeling abnormal [Recovering/Resolving]
  - Delirium [Recovered/Resolved]

NARRATIVE: CASE EVENT DATE: 202003
